FAERS Safety Report 4393684-8 (Version None)
Quarter: 2004Q3

REPORT INFORMATION
  Report Type: 
  Country: None (occurrence: None)
  Receive Date: 20040709
  Receipt Date: 20040603
  Transmission Date: 20050211
  Serious: Yes (Other)
  Sender: FDA-Public Use
  Company Number: PHEH2004US06085

PATIENT
  Age: 62 Year
  Sex: Female
  Weight: 110 kg

DRUGS (5)
  1. GLEEVEC [Suspect]
     Indication: CHRONIC MYELOID LEUKAEMIA
     Dosage: 400 MG, QD
     Route: 048
     Dates: start: 20031201
  2. ASPIRIN [Concomitant]
     Dosage: 81 MG, QD
     Route: 048
     Dates: start: 20040101, end: 20040501
  3. DYAZIDE [Concomitant]
     Indication: OEDEMA
     Dosage: 1 DF, QD
     Route: 048
  4. AMBIEN [Concomitant]
     Indication: INSOMNIA
     Dosage: 5 MG, PRN
     Route: 048
     Dates: start: 20030101
  5. ALLOPURINOL [Concomitant]
     Indication: GOUT

REACTIONS (9)
  - ANAEMIA [None]
  - DIVERTICULUM [None]
  - FATIGUE [None]
  - GASTROINTESTINAL HAEMORRHAGE [None]
  - HAEMATOCRIT DECREASED [None]
  - HAEMOGLOBIN DECREASED [None]
  - LEUKOPENIA [None]
  - PANCYTOPENIA [None]
  - RECTAL HAEMORRHAGE [None]
